FAERS Safety Report 4297521-1 (Version None)
Quarter: 2004Q1

REPORT INFORMATION
  Report Type: 
  Country: None (occurrence: None)
  Receive Date: 20040217
  Receipt Date: 20040217
  Transmission Date: 20041129
  Serious: Yes (Life-Threatening, Hospitalization)
  Sender: FDA-Public Use
  Company Number: None

PATIENT
  Age: 53 Year
  Sex: Female
  Weight: 95 kg

DRUGS (6)
  1. GAMMAR-P I.V. [Suspect]
     Indication: MULTIPLE SCLEROSIS
     Dosage: 956 M IV (16 M/KG)
     Route: 042
     Dates: start: 20030819, end: 20030821
  2. METFORMIN HCL [Concomitant]
  3. LOSARTAN [Concomitant]
  4. LASIX [Concomitant]
  5. POTASSIUM [Concomitant]
  6. MACRODAUTIN [Concomitant]

REACTIONS (3)
  - COMA [None]
  - LETHARGY [None]
  - RENAL FAILURE ACUTE [None]
